FAERS Safety Report 8129798-6 (Version None)
Quarter: 2012Q1

REPORT INFORMATION
  Report Type: 
  Country: None (occurrence: None)
  Receive Date: 20120210
  Receipt Date: 20120210
  Transmission Date: 20120608
  Serious: No
  Sender: FDA-Public Use
  Company Number: None

PATIENT
  Sex: Female

DRUGS (1)
  1. MIRENA [Suspect]

REACTIONS (19)
  - VULVOVAGINAL DISORDER [None]
  - ROSACEA [None]
  - FEELING ABNORMAL [None]
  - LYMPHOEDEMA [None]
  - BLOOD OESTROGEN DECREASED [None]
  - HEART RATE INCREASED [None]
  - FUNGAL INFECTION [None]
  - ACNE [None]
  - BREAST PAIN [None]
  - DEVICE DISLOCATION [None]
  - VOMITING [None]
  - ANXIETY [None]
  - LYMPHADENOPATHY [None]
  - REFUSAL OF TREATMENT BY PATIENT [None]
  - MALAISE [None]
  - BREAST SWELLING [None]
  - ERYTHEMA [None]
  - HYPERTENSION [None]
  - URINE ABNORMALITY [None]
